FAERS Safety Report 23711303 (Version 4)
Quarter: 2024Q3

REPORT INFORMATION
  Report Type: Spontaneous
  Country: CA (occurrence: CA)
  Receive Date: 20240405
  Receipt Date: 20240917
  Transmission Date: 20241017
  Serious: Yes (Hospitalization, Other)
  Sender: CELLTRION
  Company Number: CA-CELLTRION INC.-2023CA008556

PATIENT

DRUGS (12)
  1. INFLECTRA [Suspect]
     Active Substance: INFLIXIMAB-DYYB
     Indication: Crohn^s disease
     Dosage: 10 MG/KG, EVERY 4 WEEKS
     Route: 042
     Dates: start: 20220328, end: 20221219
  2. INFLECTRA [Suspect]
     Active Substance: INFLIXIMAB-DYYB
     Dosage: 5 MG/KG, REINDUCTION WEEKS 0, 2, 6 MAINTENANCE EVERY 4 WEEKS
     Route: 042
     Dates: start: 20230719
  3. INFLECTRA [Suspect]
     Active Substance: INFLIXIMAB-DYYB
     Dosage: 5 MG/KG, REINDUCTION WEEKS 0, 2, 6 MAINTENANCE EVERY 4 WEEKS
     Route: 042
     Dates: start: 20230803
  4. INFLECTRA [Suspect]
     Active Substance: INFLIXIMAB-DYYB
     Dosage: 5 MG/KG, REINDUCTION WEEKS 0, 2, 6 MAINTENANCE EVERY 4 WEEKS
     Route: 042
     Dates: start: 20231013
  5. INFLECTRA [Suspect]
     Active Substance: INFLIXIMAB-DYYB
     Dosage: 5 MG/KG, REINDUCTION WEEKS 0, 2, 6 MAINTENANCE EVERY 4 WEEKS
     Route: 042
     Dates: start: 20231113
  6. INFLECTRA [Suspect]
     Active Substance: INFLIXIMAB-DYYB
     Dosage: 5 MG/KG, REINDUCTION WEEKS 0, 2, 6 MAINTENANCE EVERY 4 WEEKS
     Route: 042
     Dates: start: 20231211
  7. INFLECTRA [Suspect]
     Active Substance: INFLIXIMAB-DYYB
     Dosage: 5 MG/KG, REINDUCTION WEEKS 0, 2, 6 MAINTENANCE EVERY 4 WEEKS (7 WEEKS +4 DAYS AFTER LAST TREATMENT)
     Route: 042
     Dates: start: 20240202
  8. INFLECTRA [Suspect]
     Active Substance: INFLIXIMAB-DYYB
     Dosage: 5 MG/KG, REINDUCTION WEEKS 0, 2, 6 MAINTENANCE EVERY 4 WEEKS (300MG, 5MG/KG, EVERY 4 WEEKS)
     Route: 042
     Dates: start: 20240229
  9. INFLECTRA [Suspect]
     Active Substance: INFLIXIMAB-DYYB
     Dosage: 5 MG/KG, REINDUCTION WEEKS 0, 2, 6 MAINTENANCE EVERY 4 WEEKS
     Route: 042
     Dates: start: 20240404
  10. INFLECTRA [Suspect]
     Active Substance: INFLIXIMAB-DYYB
     Dosage: 10 MG/KG, EVERY 4 WEEK (OR 700 MG)
     Route: 042
     Dates: start: 20240509
  11. INFLECTRA [Suspect]
     Active Substance: INFLIXIMAB-DYYB
     Dosage: 10 MG/KG, EVERY 4 WEEK (OR 700 MG)
     Route: 042
     Dates: start: 20240606
  12. SEROQUEL [Concomitant]
     Active Substance: QUETIAPINE FUMARATE
     Dosage: 300 MG, 1X/DAY (AT BEDTIME)
     Route: 048

REACTIONS (23)
  - Abdominal pain [Not Recovered/Not Resolved]
  - Abscess [Not Recovered/Not Resolved]
  - Anal fistula infection [Not Recovered/Not Resolved]
  - Abscess drainage [Unknown]
  - Suicidal ideation [Not Recovered/Not Resolved]
  - Drug dependence [Not Recovered/Not Resolved]
  - Malaise [Unknown]
  - Proctalgia [Not Recovered/Not Resolved]
  - Fistula [Recovered/Resolved]
  - Road traffic accident [Unknown]
  - COVID-19 [Not Recovered/Not Resolved]
  - Condition aggravated [Not Recovered/Not Resolved]
  - Infection [Recovering/Resolving]
  - Anal fissure [Recovered/Resolved]
  - Nasopharyngitis [Unknown]
  - Arteriovenous fistula site complication [Unknown]
  - Scrotal pain [Unknown]
  - Contusion [Not Recovered/Not Resolved]
  - Attention deficit hyperactivity disorder [Unknown]
  - Off label use [Unknown]
  - Intentional product use issue [Unknown]
  - Inappropriate schedule of product administration [Unknown]
  - Off label use [Unknown]

NARRATIVE: CASE EVENT DATE: 20230101
